FAERS Safety Report 7491780-X (Version None)
Quarter: 2011Q2

REPORT INFORMATION
  Report Type: 
  Country: None (occurrence: None)
  Receive Date: 20110518
  Receipt Date: 20110518
  Transmission Date: 20111010
  Serious: Yes (Other)
  Sender: FDA-Public Use
  Company Number: None

PATIENT
  Sex: Female

DRUGS (1)
  1. HYDROGEN PEROXIDE SOLUTION [Suspect]
     Indication: TOOTH DISORDER
     Dosage: TOPICAL
     Route: 061

REACTIONS (1)
  - APPLICATION SITE BURN [None]
